FAERS Safety Report 11444827 (Version 3)
Quarter: 2015Q3

REPORT INFORMATION
  Report Type: Spontaneous
  Country: US (occurrence: US)
  Receive Date: 20150902
  Receipt Date: 20150918
  Transmission Date: 20151125
  Serious: Yes (Other)
  Sender: FDA-Public Use
  Company Number: US-ASTRAZENECA-2015SE82623

PATIENT
  Age: 45 Year
  Sex: Female
  Weight: 86.2 kg

DRUGS (36)
  1. PRILOSEC [Suspect]
     Active Substance: OMEPRAZOLE MAGNESIUM
     Indication: GASTROOESOPHAGEAL REFLUX DISEASE
     Dosage: UNKNOWN
     Route: 048
  2. HCTZ [Concomitant]
     Active Substance: HYDROCHLOROTHIAZIDE
     Indication: HYPERTENSION
     Route: 048
     Dates: start: 20051219
  3. LOMOTIL [Concomitant]
     Active Substance: ATROPINE SULFATE\DIPHENOXYLATE HYDROCHLORIDE
     Indication: DIARRHOEA
     Route: 048
  4. CHANTIX [Concomitant]
     Active Substance: VARENICLINE TARTRATE
     Dosage: 0.5 MG-11 AND 1 MF-42 TABS, AS REDIRECTED
  5. ESTROGEN [Concomitant]
     Active Substance: ESTRONE\SUS SCROFA OVARY
     Route: 061
  6. DOXEPIN [Concomitant]
     Active Substance: DOXEPIN
     Indication: DEPRESSION
     Route: 048
  7. NORCO [Concomitant]
     Active Substance: ACETAMINOPHEN\HYDROCODONE BITARTRATE
     Dosage: 7.5/325 MG, ONE THREE TIMES A DAY AS REQUIRED
     Route: 048
     Dates: start: 20150224
  8. NEURONTIN [Concomitant]
     Active Substance: GABAPENTIN
     Dosage: ONE PO THREE TIMES A DAY AS REQUIRED
     Dates: start: 20150224
  9. CYCLOBENZAPRINE HCL [Concomitant]
     Active Substance: CYCLOBENZAPRINE HYDROCHLORIDE
     Indication: MUSCLE SPASMS
     Dosage: 1 TABLETS THREE TIMES A DAY AS REQUIRED
     Dates: start: 20150604
  10. XANAX [Concomitant]
     Active Substance: ALPRAZOLAM
     Indication: ANXIETY
     Route: 048
  11. CROMEPATIZINE [Concomitant]
     Indication: NAUSEA
     Route: 048
     Dates: start: 2001
  12. SLEEP MD [Concomitant]
     Dates: start: 20140331
  13. PLEGRIDY [Concomitant]
     Active Substance: PEGINTERFERON BETA-1A
     Dates: start: 20150310
  14. AMBIEN [Concomitant]
     Active Substance: ZOLPIDEM TARTRATE
     Dates: start: 20150717
  15. NEXIUM [Suspect]
     Active Substance: ESOMEPRAZOLE MAGNESIUM
     Indication: GASTROOESOPHAGEAL REFLUX DISEASE
     Route: 048
     Dates: end: 201507
  16. BENTYL [Concomitant]
     Active Substance: DICYCLOMINE HYDROCHLORIDE
     Indication: DIVERTICULITIS
     Route: 048
  17. ANOTHER MEDICATION [Concomitant]
     Active Substance: UNSPECIFIED INGREDIENT
  18. VIVILLE [Concomitant]
     Dosage: 0.1 MG/24HR
     Dates: start: 20111215
  19. NEURONTIN [Concomitant]
     Active Substance: GABAPENTIN
     Dosage: ONE PO THREE TIMES A DAY AS REQUIRED
     Dates: start: 20140617
  20. FLEXERIL [Concomitant]
     Active Substance: CYCLOBENZAPRINE HYDROCHLORIDE
     Route: 048
     Dates: start: 20150717
  21. NEXIUM [Suspect]
     Active Substance: ESOMEPRAZOLE MAGNESIUM
     Indication: GASTROOESOPHAGEAL REFLUX DISEASE
     Route: 048
     Dates: start: 20051219
  22. NATURES MADE D3 [Concomitant]
     Indication: TOOTH DISORDER
     Route: 048
  23. NEURONTIN [Concomitant]
     Active Substance: GABAPENTIN
     Dosage: ONE PO THREE TIMES A DAY
     Dates: start: 20140617
  24. BENTYL [Concomitant]
     Active Substance: DICYCLOMINE HYDROCHLORIDE
     Indication: DIVERTICULITIS
     Dosage: ONE BY MOUTH TWO TIMES A DAY AS REQUIRED
     Route: 048
     Dates: start: 20120417
  25. NITROFURANTOID MAC [Concomitant]
     Indication: CYSTITIS
     Route: 048
     Dates: start: 20130930
  26. CYCLOBENZAPRINE HCL [Concomitant]
     Active Substance: CYCLOBENZAPRINE HYDROCHLORIDE
     Indication: MUSCLE SPASMS
     Dosage: 1 TABLETS THREE TIMES A DAY AS REQUIRED
     Dates: start: 20150310
  27. LOTREL [Concomitant]
     Active Substance: AMLODIPINE BESYLATE\BENAZEPRIL HYDROCHLORIDE
     Indication: HYPERTENSION
     Dosage: 5/40 DAILY 1 DAILY
     Route: 048
     Dates: start: 20080212
  28. PROAIR HFA [Concomitant]
     Active Substance: ALBUTEROL SULFATE
     Indication: BRONCHITIS
     Dosage: 2 PUFFS FOUR TIMES A DAY AS REQUIRED
     Dates: start: 20111215
  29. PROAIR HFA [Concomitant]
     Active Substance: ALBUTEROL SULFATE
     Indication: BRONCHITIS
     Route: 050
  30. LOMOTIL [Concomitant]
     Active Substance: ATROPINE SULFATE\DIPHENOXYLATE HYDROCHLORIDE
     Indication: DIARRHOEA
     Dosage: 1-2 FOUR TIMES A DAY AS REQUIRED
     Route: 048
     Dates: start: 20140520
  31. NATURES MADE SLEEP [Concomitant]
     Indication: SLEEP DISORDER
     Route: 048
  32. RESTASIS [Concomitant]
     Active Substance: CYCLOSPORINE
     Indication: DRY EYE
     Route: 047
  33. PROMETHAZINE HCL [Concomitant]
     Active Substance: PROMETHAZINE HYDROCHLORIDE
     Indication: NAUSEA
     Dates: start: 20071214
  34. CLONAZEPAM. [Concomitant]
     Active Substance: CLONAZEPAM
     Dosage: 1 TAB TWICE A DAY AS REQUIRED
     Route: 048
     Dates: start: 20131108
  35. NORCO [Concomitant]
     Active Substance: ACETAMINOPHEN\HYDROCODONE BITARTRATE
     Dosage: 7.5/325 MG, ONE THREE TIMES A DAY AS REQUIRED
     Route: 048
     Dates: start: 20140617
  36. DOXEPIN [Concomitant]
     Active Substance: DOXEPIN
     Indication: DEPRESSION
     Dosage: 2 AT BEDTIME FOR 4 WEEKS THEN 3 FOR THERE AFTER
     Route: 048
     Dates: start: 20131210

REACTIONS (45)
  - Seizure [Unknown]
  - Clostridium difficile infection [Unknown]
  - Diarrhoea [Unknown]
  - Hypertonic bladder [Unknown]
  - Spinal disorder [Unknown]
  - Cerebral haemorrhage [Unknown]
  - Tooth loss [Unknown]
  - Mental disorder [Unknown]
  - Cystitis [Unknown]
  - Anxiety [Unknown]
  - Arachnoiditis [Unknown]
  - Abdominal pain [Unknown]
  - Drug dose omission [Unknown]
  - Diverticulitis [Unknown]
  - Dry eye [Unknown]
  - Hypothyroidism [Unknown]
  - Gastrointestinal haemorrhage [Unknown]
  - Multiple sclerosis [Unknown]
  - Deafness unilateral [Unknown]
  - Cataract [Unknown]
  - Panic attack [Unknown]
  - Hypertension [Not Recovered/Not Resolved]
  - Muscle strain [Unknown]
  - Post laminectomy syndrome [Unknown]
  - Neuralgia [Unknown]
  - Fall [Unknown]
  - Ocular sarcoidosis [Unknown]
  - Subdural haematoma [Unknown]
  - Bronchitis [Unknown]
  - Gastrooesophageal reflux disease [Unknown]
  - Neurogenic bladder [Unknown]
  - Urinary incontinence [Unknown]
  - Tobacco abuse [Unknown]
  - Amnesia [Not Recovered/Not Resolved]
  - Visual acuity reduced [Unknown]
  - Gastric disorder [Unknown]
  - Contusion [Unknown]
  - Pain [Unknown]
  - Alcohol abuse [Unknown]
  - Nausea [Unknown]
  - Intervertebral disc degeneration [Unknown]
  - Pneumonia aspiration [Unknown]
  - Muscle spasms [Unknown]
  - Irritable bowel syndrome [Unknown]
  - Depression [Unknown]

NARRATIVE: CASE EVENT DATE: 1999
